FAERS Safety Report 18122004 (Version 2)
Quarter: 2020Q3

REPORT INFORMATION
  Report Type: Spontaneous
  Country: ES (occurrence: ES)
  Receive Date: 20200806
  Receipt Date: 20200824
  Transmission Date: 20201103
  Serious: Yes (Other)
  Sender: FDA-Public Use
  Company Number: ES-AUROBINDO-AUR-APL-2020-037950

PATIENT
  Age: 72 Year
  Sex: Female

DRUGS (6)
  1. GLICLAZIDE [Interacting]
     Active Substance: GLICLAZIDE
     Indication: TYPE 2 DIABETES MELLITUS
     Dosage: 30 MILLIGRAM, 3 TIMES A DAY (3?0?0)
     Route: 065
     Dates: start: 20170517
  2. IBUPROFEN. [Suspect]
     Active Substance: IBUPROFEN
     Indication: POLYARTHRITIS
     Dosage: 600 MILLIGRAM, FOUR TIMES/DAY (1?1?1?1 )
     Route: 065
     Dates: start: 20180527
  3. ENALAPRIL MALEATE;HYDROCHLOROTHIAZIDE [Interacting]
     Active Substance: ENALAPRIL MALEATE\HYDROCHLOROTHIAZIDE
     Dosage: UNK, ONCE A DAY20 MG/12.5 MG. 1 TABLET A DAY
     Route: 065
     Dates: start: 20150207
  4. ENALAPRIL MALEATE;HYDROCHLOROTHIAZIDE [Interacting]
     Active Substance: ENALAPRIL MALEATE\HYDROCHLOROTHIAZIDE
     Indication: HYPERTENSION
     Dosage: 1 DOSAGE FORM, ONCE A DAY
     Route: 065
  5. METFORMIN [Suspect]
     Active Substance: METFORMIN HYDROCHLORIDE
     Indication: TYPE 2 DIABETES MELLITUS
     Dosage: 850 MILLIGRAM, TWO TIMES A DAY (1?0?1)
     Route: 065
     Dates: start: 20170517
  6. IBUPROFEN. [Interacting]
     Active Substance: IBUPROFEN
     Indication: PAIN
     Dosage: 600 MILLIGRAM, AS NEEDED, TO 4 SACHETS A DAY
     Route: 065

REACTIONS (14)
  - Muscle spasms [Unknown]
  - Hypoglycaemia [Unknown]
  - Drug ineffective [Unknown]
  - Tremor [Unknown]
  - Malaise [Unknown]
  - Hypertension [Unknown]
  - Oedema peripheral [Unknown]
  - Diarrhoea [Unknown]
  - Arthralgia [Unknown]
  - Decreased appetite [Unknown]
  - Hyperhidrosis [Unknown]
  - Renal failure [Unknown]
  - Dizziness [Unknown]
  - Drug interaction [Unknown]
